FAERS Safety Report 7031679-6 (Version None)
Quarter: 2010Q4

REPORT INFORMATION
  Report Type: 
  Country: None (occurrence: None)
  Receive Date: 20101004
  Receipt Date: 20100916
  Transmission Date: 20110411
  Serious: Yes (Hospitalization)
  Sender: FDA-Public Use
  Company Number: 2010S1000601

PATIENT
  Age: 80 Year
  Sex: Male
  Weight: 59 kg

DRUGS (8)
  1. LIVALO [Suspect]
     Indication: HYPERCHOLESTEROLAEMIA
     Dosage: 2 MG;1X;PO ; 1MG;1X;PO ; 1 MG;QOD;PO ; 1 MG;1X;PO
     Route: 048
     Dates: start: 20050104, end: 20090325
  2. LIVALO [Suspect]
     Indication: HYPERCHOLESTEROLAEMIA
     Dosage: 2 MG;1X;PO ; 1MG;1X;PO ; 1 MG;QOD;PO ; 1 MG;1X;PO
     Route: 048
     Dates: start: 20090326, end: 20100117
  3. LIVALO [Suspect]
     Indication: HYPERCHOLESTEROLAEMIA
     Dosage: 2 MG;1X;PO ; 1MG;1X;PO ; 1 MG;QOD;PO ; 1 MG;1X;PO
     Route: 048
     Dates: start: 20100118, end: 20100208
  4. LIVALO [Suspect]
     Indication: HYPERCHOLESTEROLAEMIA
     Dosage: 2 MG;1X;PO ; 1MG;1X;PO ; 1 MG;QOD;PO ; 1 MG;1X;PO
     Route: 048
     Dates: start: 20100209
  5. DIOVAN /01319601/ [Concomitant]
  6. LASIX [Concomitant]
  7. ARTIST [Concomitant]
  8. AMARYL [Concomitant]

REACTIONS (3)
  - DECREASED APPETITE [None]
  - HAEMOPTYSIS [None]
  - LUNG NEOPLASM [None]
